FAERS Safety Report 22012058 (Version 1)
Quarter: 2023Q1

REPORT INFORMATION
  Report Type: Other
  Country: GB (occurrence: GB)
  Receive Date: 20230220
  Receipt Date: 20230220
  Transmission Date: 20230418
  Serious: Yes (Disabling, Other)
  Sender: FDA-Public Use
  Company Number: GB-DEXPHARM-20230346

PATIENT
  Age: 68 Year
  Sex: Female

DRUGS (1)
  1. OMEPRAZOLE [Suspect]
     Active Substance: OMEPRAZOLE
     Dosage: NA

REACTIONS (3)
  - Lupus-like syndrome [Unknown]
  - Chronic cutaneous lupus erythematosus [Unknown]
  - Photosensitivity reaction [Unknown]
